FAERS Safety Report 4330435-7 (Version None)
Quarter: 2004Q2

REPORT INFORMATION
  Report Type: 
  Country: None (occurrence: None)
  Receive Date: 20040402
  Receipt Date: 20031031
  Transmission Date: 20050107
  Serious: Yes (Death, Hospitalization)
  Sender: FDA-Public Use
  Company Number: CH-BRISTOL-MYERS SQUIBB COMPANY-12423075

PATIENT
  Age: 35 Year
  Sex: Male

DRUGS (6)
  1. ATAZANAVIR [Suspect]
     Indication: HIV INFECTION
     Route: 048
     Dates: start: 20030624, end: 20031023
  2. COMBIVIR [Suspect]
     Dosage: LAMIVUDINE 150 MG + ZIDOVUDINE 300 MG = 1 DOSAGE FORM.
     Route: 048
     Dates: start: 20020202, end: 20031023
  3. PASPERTIN [Suspect]
     Route: 048
     Dates: start: 20030722, end: 20031030
  4. ESOMEPRAZOLE [Suspect]
  5. METHADONE HCL [Suspect]
     Indication: DRUG DEPENDENCE
  6. CO-TRIMOXAZOLE [Suspect]
     Dates: start: 20031108, end: 20031125

REACTIONS (10)
  - ANAEMIA MACROCYTIC [None]
  - DEATH [None]
  - GENERAL PHYSICAL HEALTH DETERIORATION [None]
  - JAUNDICE [None]
  - LEUKOPENIA [None]
  - MUSCULAR WEAKNESS [None]
  - PANCYTOPENIA [None]
  - PNEUMONIA [None]
  - SOMNOLENCE [None]
  - THROMBOCYTOPENIA [None]
